FAERS Safety Report 25933897 (Version 1)
Quarter: 2025Q4

REPORT INFORMATION
  Report Type: Spontaneous
  Country: US (occurrence: None)
  Receive Date: 20251016
  Receipt Date: 20251016
  Transmission Date: 20260118
  Serious: Yes (Death)
  Sender: FDA-CTU
  Company Number: None

PATIENT
  Sex: Female

DRUGS (7)
  1. SILDENAFIL [Suspect]
     Active Substance: SILDENAFIL
     Dosage: OTHER FREQUENCY : EVERY 8 HOURS;?
     Route: 048
     Dates: start: 20170810
  2. ALDACTAZIDE TAB 50/50 [Concomitant]
  3. ALDACTONE TAB 25MG [Concomitant]
  4. BUMEX TAB 1MG [Concomitant]
  5. IRON SLOW TAB 45MG [Concomitant]
  6. VITAMIN C TAB 500MG [Concomitant]
  7. VITAMIN D CAP 400UNIT [Concomitant]

REACTIONS (1)
  - Death [None]
